FAERS Safety Report 4874773-8 (Version None)
Quarter: 2006Q1

REPORT INFORMATION
  Report Type: 
  Country: None (occurrence: None)
  Receive Date: 20060109
  Receipt Date: 20051109
  Transmission Date: 20060701
  Serious: Yes (Hospitalization)
  Sender: FDA-Public Use
  Company Number: US-SOLVAY-00205003779

PATIENT
  Sex: Female

DRUGS (4)
  1. TOLECTIN [Concomitant]
     Indication: ILL-DEFINED DISORDER
     Dosage: DAILY DOSE: 400 MILLIGRAM(S)
     Route: 048
     Dates: start: 20020523
  2. PROMETRIUM [Suspect]
     Indication: ENDOMETRIAL HYPERPLASIA
     Dosage: DAILY DOSE: 100 MILLIGRAM(S)
     Route: 048
     Dates: start: 20050729, end: 20051107
  3. PROVERA [Suspect]
     Indication: ILL-DEFINED DISORDER
     Dosage: DAILY DOSE: 10 MILLIGRAM(S)
     Route: 048
     Dates: start: 20050729, end: 20050824
  4. PROVERA [Suspect]
     Dosage: DAILY DOSE: 10 MG EVERY OTHER DAY
     Route: 048
     Dates: start: 20050825

REACTIONS (3)
  - ENDOMETRIAL HYPERPLASIA [None]
  - MOOD ALTERED [None]
  - PSYCHOTIC DISORDER [None]
